FAERS Safety Report 24868483 (Version 5)
Quarter: 2025Q1

REPORT INFORMATION
  Report Type: Report from Study
  Country: CA (occurrence: CA)
  Receive Date: 20250121
  Receipt Date: 20250314
  Transmission Date: 20250409
  Serious: Yes (Hospitalization)
  Sender: ABBVIE
  Company Number: CA-ABBVIE-6052774

PATIENT
  Age: 70 Year
  Sex: Female

DRUGS (8)
  1. VYALEV [Suspect]
     Active Substance: FOSCARBIDOPA\FOSLEVODOPA
     Indication: Product used for unknown indication
     Route: 058
     Dates: start: 20240912
  2. VYALEV [Suspect]
     Active Substance: FOSCARBIDOPA\FOSLEVODOPA
     Route: 058
  3. BENSERAZIDE\LEVODOPA [Concomitant]
     Active Substance: BENSERAZIDE\LEVODOPA
     Indication: Product used for unknown indication
     Route: 065
  4. NEUPRO [Concomitant]
     Active Substance: ROTIGOTINE
     Indication: Product used for unknown indication
     Route: 065
  5. IBSRELA [Concomitant]
     Active Substance: TENAPANOR HYDROCHLORIDE
     Indication: Product used for unknown indication
     Route: 065
  6. POLYETHYLENE GLYCOL 3350 [Concomitant]
     Active Substance: POLYETHYLENE GLYCOL 3350
     Indication: Product used for unknown indication
     Route: 065
  7. FRAGMIN [Concomitant]
     Active Substance: DALTEPARIN SODIUM
     Indication: Product used for unknown indication
     Route: 065
  8. VITAMIN B12 [Concomitant]
     Active Substance: CYANOCOBALAMIN
     Indication: Product used for unknown indication
     Route: 065

REACTIONS (15)
  - Foreign body in throat [Recovered/Resolved]
  - Malaise [Unknown]
  - Arthralgia [Unknown]
  - Infusion site infection [Unknown]
  - Infusion site mass [Unknown]
  - Impaired healing [Unknown]
  - Dysstasia [Unknown]
  - Device connection issue [Unknown]
  - Infusion site pain [Unknown]
  - Pyrexia [Recovered/Resolved]
  - Dyspnoea [Unknown]
  - Skin infection [Recovering/Resolving]
  - Infusion site erythema [Unknown]
  - Device power source issue [Unknown]
  - Infusion site induration [Unknown]

NARRATIVE: CASE EVENT DATE: 20240101
